FAERS Safety Report 6199923-5 (Version None)
Quarter: 2009Q2

REPORT INFORMATION
  Report Type: 
  Country: None (occurrence: None)
  Receive Date: 20090520
  Receipt Date: 20090520
  Transmission Date: 20091009
  Serious: No
  Sender: FDA-Public Use
  Company Number: None

PATIENT
  Sex: Male

DRUGS (2)
  1. CAPECITABINE 500MG AND 150MG ROCHE [Suspect]
     Indication: PANCREATIC CARCINOMA
     Dosage: 1250MG/M2 TWICE DAILY D1-7 PO
     Route: 048
     Dates: start: 20080511, end: 20090325
  2. GEMCITABINE [Suspect]
     Indication: PANCREATIC CARCINOMA
     Dosage: 1000MG/M2 Q 2 WEEKS IV
     Route: 042
     Dates: start: 20080511, end: 20090325

REACTIONS (1)
  - PALMAR-PLANTAR ERYTHRODYSAESTHESIA SYNDROME [None]
